FAERS Safety Report 7269700-2 (Version None)
Quarter: 2011Q1

REPORT INFORMATION
  Report Type: 
  Country: None (occurrence: None)
  Receive Date: 20110124
  Receipt Date: 20110113
  Transmission Date: 20110831
  Serious: Yes (Hospitalization, Other)
  Sender: FDA-Public Use
  Company Number: 2010US004827

PATIENT
  Age: 41 Year
  Sex: Female
  Weight: 131 kg

DRUGS (3)
  1. CELLCEPT [Concomitant]
  2. PROGRAF [Suspect]
     Indication: RENAL TRANSPLANT
     Dosage: 5 MG, BID, ORAL
     Route: 048
     Dates: start: 20060914
  3. CELLCEPT [Concomitant]

REACTIONS (23)
  - GASTROOESOPHAGEAL REFLUX DISEASE [None]
  - DIARRHOEA [None]
  - HAEMATOCRIT DECREASED [None]
  - INSOMNIA [None]
  - HYPOCALCAEMIA [None]
  - HAEMOGLOBIN DECREASED [None]
  - TOE AMPUTATION [None]
  - NEUROPATHY PERIPHERAL [None]
  - FINGER AMPUTATION [None]
  - RENAL FAILURE ACUTE [None]
  - LOCALISED INFECTION [None]
  - OSTEOMYELITIS CHRONIC [None]
  - CORONARY ARTERY DISEASE [None]
  - CEREBROVASCULAR DISORDER [None]
  - HEADACHE [None]
  - LEG AMPUTATION [None]
  - SKIN ULCER [None]
  - BUNDLE BRANCH BLOCK LEFT [None]
  - SKIN NECROSIS [None]
  - GANGRENE [None]
  - KIDNEY TRANSPLANT REJECTION [None]
  - HYPOVOLAEMIA [None]
  - VENTRICULAR HYPOKINESIA [None]
